FAERS Safety Report 19228231 (Version 1)
Quarter: 2021Q2

REPORT INFORMATION
  Report Type: Spontaneous
  Country: RU (occurrence: RU)
  Receive Date: 20210507
  Receipt Date: 20210507
  Transmission Date: 20210717
  Serious: Yes (Hospitalization, Other)
  Sender: FDA-Public Use
  Company Number: RU-B.I. PHARMACEUTICALS,INC./RIDGEFIELD-2021-BI-101277

PATIENT
  Age: 61 Year
  Sex: Female

DRUGS (3)
  1. BERLIPRIL [Concomitant]
     Active Substance: ENALAPRIL MALEATE
     Indication: ESSENTIAL HYPERTENSION
  2. SOTALOL. [Concomitant]
     Active Substance: SOTALOL
     Indication: ATRIAL FIBRILLATION
  3. PRADAXA [Suspect]
     Active Substance: DABIGATRAN ETEXILATE MESYLATE
     Indication: ATRIAL FIBRILLATION
     Route: 048
     Dates: start: 202012, end: 20210419

REACTIONS (2)
  - Embolic stroke [Recovered/Resolved with Sequelae]
  - Vestibulocerebellar syndrome [Recovered/Resolved with Sequelae]

NARRATIVE: CASE EVENT DATE: 20210419
